FAERS Safety Report 7089081-7 (Version None)
Quarter: 2010Q4

REPORT INFORMATION
  Report Type: 
  Country: None (occurrence: None)
  Receive Date: 20101108
  Receipt Date: 20101026
  Transmission Date: 20110411
  Serious: Yes (Hospitalization)
  Sender: FDA-Public Use
  Company Number: B0683080A

PATIENT
  Age: 41 Year
  Sex: Male

DRUGS (6)
  1. EPIVIR [Suspect]
     Indication: HIV INFECTION
     Route: 065
     Dates: start: 19980814, end: 20090707
  2. NORVIR [Suspect]
     Indication: HIV INFECTION
     Route: 065
     Dates: start: 20040712
  3. REYATAZ [Suspect]
     Indication: HIV INFECTION
     Route: 065
     Dates: start: 20040117, end: 20090707
  4. VIREAD [Suspect]
     Indication: HIV INFECTION
     Route: 065
     Dates: start: 20040712, end: 20090707
  5. OCTOCOG ALFA [Concomitant]
  6. TAKEPRON [Concomitant]

REACTIONS (2)
  - GASTRIC ULCER [None]
  - REFLUX OESOPHAGITIS [None]
